FAERS Safety Report 8936136 (Version 1)
Quarter: 2012Q4

REPORT INFORMATION
  Report Type: 
  Country: US (occurrence: US)
  Receive Date: 20121130
  Receipt Date: 20121130
  Transmission Date: 20130627
  Serious: No
  Sender: FDA-Public Use
  Company Number: US-ABBOTT-12P-163-0984290-00

PATIENT
  Age: 84 Year
  Sex: Male
  Weight: 81.72 kg

DRUGS (4)
  1. ANDROGEL [Suspect]
     Indication: BLOOD TESTOSTERONE DECREASED
     Dosage: 4 pumps daily
     Dates: start: 201204, end: 201207
  2. ANDROGEL [Suspect]
     Dosage: 3 pumps daily
     Dates: start: 201207
  3. ZOCOR [Concomitant]
     Indication: HYPERLIPIDAEMIA
  4. SYNTHROID [Concomitant]
     Indication: HYPOTHYROIDISM

REACTIONS (2)
  - Joint swelling [Not Recovered/Not Resolved]
  - Joint stiffness [Not Recovered/Not Resolved]
